FAERS Safety Report 15661493 (Version 5)
Quarter: 2023Q1

REPORT INFORMATION
  Report Type: Report from Study
  Country: DE (occurrence: DE)
  Receive Date: 20181127
  Receipt Date: 20230222
  Transmission Date: 20230417
  Serious: Yes (Life-Threatening, Hospitalization, Disabling, Other)
  Sender: FDA-Public Use
  Company Number: PHHO2018DE012492

PATIENT
  Age: 61 Year
  Sex: Female
  Weight: 70.2 kg

DRUGS (3)
  1. SECUKINUMAB [Suspect]
     Active Substance: SECUKINUMAB
     Indication: Psoriasis
     Dosage: 300 MG, UNK
     Route: 058
     Dates: start: 20180608, end: 20181107
  2. NOVALGIN [Concomitant]
     Indication: Analgesic therapy
     Route: 065
  3. HYDROMORPHONE [Concomitant]
     Active Substance: HYDROMORPHONE
     Indication: Analgesic therapy
     Route: 065

REACTIONS (3)
  - Metastases to bone [Recovering/Resolving]
  - Breast cancer [Recovering/Resolving]
  - Metastatic neoplasm [Recovering/Resolving]

NARRATIVE: CASE EVENT DATE: 20181110
